FAERS Safety Report 12974206 (Version 3)
Quarter: 2021Q2

REPORT INFORMATION
  Report Type: Spontaneous
  Country: US (occurrence: US)
  Receive Date: 20161125
  Receipt Date: 20210407
  Transmission Date: 20210716
  Serious: Yes (Other)
  Sender: FDA-Public Use
  Company Number: US-JNJFOC-20161118347

PATIENT
  Age: 60 Year
  Sex: Female
  Weight: 59.02 kg

DRUGS (9)
  1. SOVALDI [Suspect]
     Active Substance: SOFOSBUVIR
     Indication: HEPATITIS C
     Route: 065
     Dates: start: 201405, end: 201410
  2. XIFAXAN [Concomitant]
     Active Substance: RIFAXIMIN
     Indication: HEPATIC ENCEPHALOPATHY
     Route: 048
     Dates: start: 2014
  3. LACTULOSE. [Concomitant]
     Active Substance: LACTULOSE
     Indication: HEPATIC FAILURE
     Route: 065
     Dates: start: 2014
  4. OLYSIO [Suspect]
     Active Substance: SIMEPREVIR
     Indication: HEPATITIS C
     Route: 048
     Dates: start: 201405, end: 201410
  5. CETIRIZINE HYDROCHLORIDE. [Interacting]
     Active Substance: CETIRIZINE HYDROCHLORIDE
     Indication: PRURITUS
     Dosage: 2?3 TABLETS IN THE MORNING.
     Route: 065
     Dates: start: 2014, end: 2014
  6. RIBAVIRIN. [Suspect]
     Active Substance: RIBAVIRIN
     Indication: HEPATITIS C
     Route: 065
     Dates: start: 201405, end: 201410
  7. XANAX [Concomitant]
     Active Substance: ALPRAZOLAM
     Indication: ANXIETY
     Route: 048
     Dates: start: 2009
  8. CLARITINE [Suspect]
     Active Substance: LORATADINE
     Indication: PRURITUS
     Dosage: 3 IN THE MORNING
     Route: 065
     Dates: start: 2014, end: 2014
  9. SYNTHROID [Concomitant]
     Active Substance: LEVOTHYROXINE SODIUM
     Indication: AUTOIMMUNE THYROIDITIS
     Route: 048
     Dates: start: 1984

REACTIONS (12)
  - Arrhythmia [Not Recovered/Not Resolved]
  - Tremor [Recovered/Resolved]
  - Drug interaction [Not Recovered/Not Resolved]
  - Palpitations [Recovered/Resolved]
  - Insomnia [Not Recovered/Not Resolved]
  - Chest pain [Recovered/Resolved]
  - Rash pruritic [Recovered/Resolved]
  - Asthenia [Not Recovered/Not Resolved]
  - Adverse event [Not Recovered/Not Resolved]
  - Infection [Unknown]
  - Fatigue [Not Recovered/Not Resolved]
  - Anxiety [Recovered/Resolved]

NARRATIVE: CASE EVENT DATE: 2014
